FAERS Safety Report 4899478-9 (Version None)
Quarter: 2006Q1

REPORT INFORMATION
  Report Type: 
  Country: None (occurrence: None)
  Receive Date: 20060118
  Receipt Date: 20050527
  Transmission Date: 20060701
  Serious: No
  Sender: FDA-Public Use
  Company Number: 2005000985

PATIENT
  Age: 67 Year
  Sex: Male
  Weight: 105.2345 kg

DRUGS (8)
  1. TARCEVA [Suspect]
     Indication: HEPATIC NEOPLASM MALIGNANT
     Dosage: 150 MG (QD), ORAL
     Route: 048
  2. BABY ASPIRIN (ACETYLSALICYCLIC ACID) [Concomitant]
  3. NORVASC [Concomitant]
  4. PLAVIX [Concomitant]
  5. INSULIN (INSULIN) [Concomitant]
  6. METOPROLOL (METOPROLOL) [Concomitant]
  7. DOXYCYCLINE [Concomitant]
  8. AVANDIA [Concomitant]

REACTIONS (3)
  - BLOOD IRON DECREASED [None]
  - DIARRHOEA [None]
  - RASH [None]
